FAERS Safety Report 17615119 (Version 1)
Quarter: 2020Q1

REPORT INFORMATION
  Report Type: Spontaneous
  Country: US (occurrence: US)
  Receive Date: 20200331
  Receipt Date: 20200331
  Transmission Date: 20200409
  Serious: Yes (Hospitalization)
  Sender: FDA-Public Use
  Company Number: None

PATIENT
  Sex: Female

DRUGS (22)
  1. CHLORHEX GLU [Concomitant]
  2. VENLAFAXINE [Concomitant]
     Active Substance: VENLAFAXINE HYDROCHLORIDE
  3. INVEGA SUSTENNA [Suspect]
     Active Substance: PALIPERIDONE PALMITATE
     Indication: SCHIZOPHRENIA
     Route: 030
  4. AMOXICILLIN. [Concomitant]
     Active Substance: AMOXICILLIN
  5. DULOXETINE. [Concomitant]
     Active Substance: DULOXETINE
  6. FLUCONAZOLE. [Concomitant]
     Active Substance: FLUCONAZOLE
  7. MIRTAZAPINE. [Concomitant]
     Active Substance: MIRTAZAPINE
  8. PHENAZOPYRID [Concomitant]
  9. HYDROXYZ HCL [Concomitant]
     Active Substance: HYDROXYZINE HYDROCHLORIDE
  10. MAGNESIUM OX [Concomitant]
  11. TRAZODONE [Concomitant]
     Active Substance: TRAZODONE HYDROCHLORIDE
  12. APAP/CODEINE [Concomitant]
     Active Substance: ACETAMINOPHEN\CODEINE PHOSPHATE
  13. BENZTROPINE. [Concomitant]
     Active Substance: BENZTROPINE
  14. DICYCLOMINE [Concomitant]
     Active Substance: DICYCLOMINE HYDROCHLORIDE
  15. DIVALPROEX [Concomitant]
     Active Substance: DIVALPROEX SODIUM
  16. METRONIDAZOL [Concomitant]
     Active Substance: METRONIDAZOLE
  17. ONDANSETRON [Concomitant]
     Active Substance: ONDANSETRON
  18. TRULANCE [Concomitant]
     Active Substance: PLECANATIDE
  19. DOXYCYC MONO [Concomitant]
     Active Substance: DOXYCYCLINE
  20. GABAPENTIN. [Concomitant]
     Active Substance: GABAPENTIN
  21. MYRBETRIQ [Concomitant]
     Active Substance: MIRABEGRON
  22. PANTOPRAZOLE [Concomitant]
     Active Substance: PANTOPRAZOLE

REACTIONS (2)
  - Hospitalisation [None]
  - Therapy cessation [None]
